FAERS Safety Report 23491310 (Version 1)
Quarter: 2024Q1

REPORT INFORMATION
  Report Type: Spontaneous
  Country: CA (occurrence: CA)
  Receive Date: 20240207
  Receipt Date: 20240207
  Transmission Date: 20240409
  Serious: Yes (Other)
  Sender: FDA-Public Use
  Company Number: None

PATIENT
  Age: 70 Year
  Sex: Male

DRUGS (2)
  1. LEUPROLIDE [Suspect]
     Active Substance: LEUPROLIDE
     Indication: Prostate cancer
  2. ENZALUTAMIDE [Suspect]
     Active Substance: ENZALUTAMIDE
     Indication: Prostate cancer
     Route: 065

REACTIONS (5)
  - Abdominal pain [Unknown]
  - Immunoglobulin G4 related disease [Unknown]
  - Jaundice [Unknown]
  - Metastases to bone [Unknown]
  - Prostatic specific antigen increased [Unknown]
